FAERS Safety Report 13359390 (Version 2)
Quarter: 2017Q1

REPORT INFORMATION
  Report Type: Spontaneous
  Country: US (occurrence: US)
  Receive Date: 20170322
  Receipt Date: 20170330
  Transmission Date: 20170429
  Serious: No
  Sender: FDA-Public Use
  Company Number: US-HORIZON-ACT-0054-2017

PATIENT
  Age: 3 Year
  Sex: Male

DRUGS (6)
  1. MICAFUNGIN [Concomitant]
     Active Substance: MICAFUNGIN
  2. VORICONAZOLE. [Concomitant]
     Active Substance: VORICONAZOLE
  3. VITAMIN D [Concomitant]
     Active Substance: CHOLECALCIFEROL
  4. ACTIMMUNE [Suspect]
     Active Substance: INTERFERON GAMMA-1B
     Indication: CHRONIC GRANULOMATOUS DISEASE
     Dosage: 0.175 ML TIW
     Dates: start: 20170313
  5. POTASSIUM [Concomitant]
     Active Substance: POTASSIUM
  6. BACTRIM [Concomitant]
     Active Substance: SULFAMETHOXAZOLE\TRIMETHOPRIM

REACTIONS (1)
  - Somnolence [Recovered/Resolved]

NARRATIVE: CASE EVENT DATE: 20170314
